FAERS Safety Report 9717202 (Version 2)
Quarter: 2013Q4

REPORT INFORMATION
  Report Type: Spontaneous
  Country: US (occurrence: US)
  Receive Date: 20131127
  Receipt Date: 20131231
  Transmission Date: 20140711
  Serious: Yes (Hospitalization)
  Sender: FDA-Public Use
  Company Number: US-JNJFOC-20131113029

PATIENT
  Sex: Female
  Weight: 63.05 kg

DRUGS (3)
  1. XARELTO [Suspect]
     Indication: DEEP VEIN THROMBOSIS
     Route: 048
     Dates: start: 20131018
  2. CELEXA [Concomitant]
     Indication: DEPRESSION
     Route: 065
  3. NITROSTAT [Concomitant]
     Indication: ANGINA PECTORIS
     Route: 065

REACTIONS (1)
  - Myocardial infarction [Unknown]
